FAERS Safety Report 18484715 (Version 2)
Quarter: 2022Q3

REPORT INFORMATION
  Report Type: Spontaneous
  Country: JP (occurrence: JP)
  Receive Date: 20201110
  Receipt Date: 20220714
  Transmission Date: 20221027
  Serious: Yes (Other)
  Sender: FDA-Public Use
  Company Number: JP-GLAXOSMITHKLINE-JP2020JPN219484

PATIENT

DRUGS (3)
  1. BENZOYL PEROXIDE\CLINDAMYCIN PHOSPHATE [Suspect]
     Active Substance: BENZOYL PEROXIDE\CLINDAMYCIN PHOSPHATE
     Dosage: UNK
     Route: 061
     Dates: start: 201807, end: 201810
  2. NIZORAL [Concomitant]
     Active Substance: KETOCONAZOLE
     Dosage: UNK
     Route: 050
     Dates: start: 201807, end: 201810
  3. BILANOA TABLET [Concomitant]
     Dosage: UNK
     Route: 048
     Dates: start: 201807, end: 201810

REACTIONS (1)
  - Colitis ulcerative [Not Recovered/Not Resolved]
